FAERS Safety Report 5366811-3 (Version None)
Quarter: 2007Q2

REPORT INFORMATION
  Report Type: 
  Country: None (occurrence: None)
  Receive Date: 20070622
  Receipt Date: 20061115
  Transmission Date: 20071010
  Serious: No
  Sender: FDA-Public Use
  Company Number: A0627547A

PATIENT

DRUGS (1)
  1. ZYBAN [Suspect]
     Route: 048
     Dates: start: 20050101

REACTIONS (3)
  - HYPERTENSION [None]
  - HYPOACTIVE SEXUAL DESIRE DISORDER [None]
  - SLEEP DISORDER [None]
